FAERS Safety Report 4326329-3 (Version None)
Quarter: 2004Q1

REPORT INFORMATION
  Report Type: 
  Country: None (occurrence: None)
  Receive Date: 20040323
  Receipt Date: 20040309
  Transmission Date: 20041129
  Serious: Yes (Other)
  Sender: FDA-Public Use
  Company Number: US-JNJFOC-20040104576

PATIENT
  Age: 50 Year
  Sex: Male
  Weight: 78.0187 kg

DRUGS (6)
  1. REMICADE [Suspect]
     Indication: RHEUMATOID ARTHRITIS
     Dosage: 30 MG, 1 IN 1 DAY, INTRAVENOUS; 500 MG, INTRAVENOUS
     Route: 042
     Dates: start: 20030430
  2. REMICADE [Suspect]
     Indication: RHEUMATOID ARTHRITIS
     Dosage: 30 MG, 1 IN 1 DAY, INTRAVENOUS; 500 MG, INTRAVENOUS
     Route: 042
     Dates: start: 20030811
  3. METHOTREXATE [Suspect]
     Indication: RHEUMATOID ARTHRITIS
     Dosage: 17.5 MG, 1 IN 1 WEEK
     Dates: start: 19970901, end: 20031001
  4. FOLIC ACID [Concomitant]
  5. ADVIL [Concomitant]
  6. OMEGA 3 FISH OIL (OMEGA-3 TRIGLYCERIDES) [Concomitant]

REACTIONS (1)
  - NON-HODGKIN'S LYMPHOMA [None]
